FAERS Safety Report 9064540 (Version 1)
Quarter: 2013Q1

REPORT INFORMATION
  Report Type: Spontaneous
  Country: US (occurrence: US)
  Receive Date: 20130130
  Receipt Date: 20130130
  Transmission Date: 20140127
  Serious: Yes (Hospitalization)
  Sender: FDA-Public Use
  Company Number: US-BAYER-2013-011841

PATIENT
  Sex: Male

DRUGS (1)
  1. CIPRO [Suspect]
     Dosage: UNK

REACTIONS (1)
  - Tendon rupture [None]
